FAERS Safety Report 8207398-7 (Version None)
Quarter: 2012Q1

REPORT INFORMATION
  Report Type: 
  Country: None (occurrence: None)
  Receive Date: 20120312
  Receipt Date: 20120229
  Transmission Date: 20120608
  Serious: No
  Sender: FDA-Public Use
  Company Number: 2012FO000272

PATIENT
  Age: 71 Year
  Sex: Female
  Weight: 73 kg

DRUGS (1)
  1. DICLOFENAC SODIUM [Suspect]
     Indication: PAIN IN EXTREMITY
     Dates: start: 20110806, end: 20110809

REACTIONS (3)
  - COOMBS TEST POSITIVE [None]
  - HAEMOLYSIS [None]
  - OFF LABEL USE [None]
